FAERS Safety Report 6830490-6 (Version None)
Quarter: 2010Q3

REPORT INFORMATION
  Report Type: 
  Country: None (occurrence: None)
  Receive Date: 20100712
  Receipt Date: 20100629
  Transmission Date: 20110219
  Serious: No
  Sender: FDA-Public Use
  Company Number: US-BIOGENIDEC-2010BI022056

PATIENT
  Age: 45 Year
  Sex: Female

DRUGS (1)
  1. AVONEX [Suspect]
     Indication: MULTIPLE SCLEROSIS
     Route: 030
     Dates: start: 20100627

REACTIONS (6)
  - CHILLS [None]
  - DISORIENTATION [None]
  - DISSOCIATION [None]
  - FATIGUE [None]
  - PAIN [None]
  - SOMNOLENCE [None]
